FAERS Safety Report 14971134 (Version 1)
Quarter: 2018Q2

REPORT INFORMATION
  Report Type: Spontaneous
  Country: PL (occurrence: PL)
  Receive Date: 20180604
  Receipt Date: 20180604
  Transmission Date: 20180711
  Serious: Yes (Other)
  Sender: FDA-Public Use
  Company Number: PL-PFIZER INC-2018226449

PATIENT
  Age: 27 Year
  Sex: Female

DRUGS (4)
  1. CYCLOSPORIN A [Concomitant]
     Active Substance: CYCLOSPORINE
     Dosage: UNK
     Route: 065
  2. METHOTREXATE SODIUM. [Suspect]
     Active Substance: METHOTREXATE SODIUM
     Dosage: UNK
     Route: 065
  3. SIROLIMUS. [Concomitant]
     Active Substance: SIROLIMUS
     Dosage: UNK
     Route: 065
  4. BENDAMUSTINE HYDROCHLORIDE. [Suspect]
     Active Substance: BENDAMUSTINE HYDROCHLORIDE
     Dosage: UNK, CYCLIC
     Route: 042

REACTIONS (9)
  - Nail pterygium [Unknown]
  - Obliterative bronchiolitis [Unknown]
  - Lichen planus [Unknown]
  - Oral lichen planus [Unknown]
  - Chronic graft versus host disease [Unknown]
  - Nail dystrophy [Unknown]
  - Dry eye [Unknown]
  - Alopecia scarring [Unknown]
  - Acute graft versus host disease in skin [Unknown]
